FAERS Safety Report 23875243 (Version 1)
Quarter: 2024Q2

REPORT INFORMATION
  Report Type: Spontaneous
  Country: US (occurrence: US)
  Receive Date: 20240520
  Receipt Date: 20240520
  Transmission Date: 20240716
  Serious: No
  Sender: FDA-Public Use
  Company Number: US-TEVA-VS-3194625

PATIENT
  Age: 41 Year
  Sex: Female

DRUGS (1)
  1. TIAGABINE HYDROCHLORIDE [Suspect]
     Active Substance: TIAGABINE HYDROCHLORIDE
     Indication: Seizure
     Route: 065
     Dates: start: 20231101

REACTIONS (1)
  - Abnormal behaviour [Unknown]
